FAERS Safety Report 12680177 (Version 2)
Quarter: 2017Q1

REPORT INFORMATION
  Report Type: Report from Study
  Country: US (occurrence: US)
  Receive Date: 20160824
  Receipt Date: 20170123
  Transmission Date: 20170428
  Serious: Yes (Other)
  Sender: FDA-Public Use
  Company Number: PHEH2016US020973

PATIENT
  Age: 53 Year
  Sex: Female

DRUGS (1)
  1. COSENTYX [Suspect]
     Active Substance: SECUKINUMAB
     Indication: PRODUCT USED FOR UNKNOWN INDICATION
     Dosage: 300 MG, QD (DAILY FOR 4 MONTHS)
     Route: 065

REACTIONS (7)
  - Functional gastrointestinal disorder [Unknown]
  - Ankle fracture [Unknown]
  - Inappropriate schedule of drug administration [Unknown]
  - Skin swelling [Not Recovered/Not Resolved]
  - Psoriasis [Unknown]
  - Vomiting [Recovered/Resolved]
  - Skin exfoliation [Not Recovered/Not Resolved]

NARRATIVE: CASE EVENT DATE: 20161119
